FAERS Safety Report 25156117 (Version 6)
Quarter: 2025Q3

REPORT INFORMATION
  Report Type: Report from Study
  Country: US (occurrence: US)
  Receive Date: 20250403
  Receipt Date: 20250903
  Transmission Date: 20251020
  Serious: No
  Sender: AVERITAS
  Company Number: US-GRUNENTHAL-2025-104826

PATIENT
  Age: 74 Year
  Sex: Female

DRUGS (5)
  1. QUTENZA [Suspect]
     Active Substance: CAPSAICIN
     Indication: Diabetic neuropathy
     Route: 061
     Dates: start: 20241226, end: 20241226
  2. QUTENZA [Suspect]
     Active Substance: CAPSAICIN
     Route: 061
     Dates: start: 20250328, end: 20250328
  3. QUTENZA [Suspect]
     Active Substance: CAPSAICIN
     Route: 061
     Dates: start: 20250701, end: 20250701
  4. UNSPECIFIED INGREDIENT [Concomitant]
     Active Substance: UNSPECIFIED INGREDIENT
     Indication: Product used for unknown indication
     Dosage: UNK, 2/DAY
     Route: 065
  5. GABAPENTIN [Concomitant]
     Active Substance: GABAPENTIN
     Dosage: UNK, 2/DAY
     Route: 065

REACTIONS (10)
  - Burning sensation [Recovered/Resolved]
  - Limb discomfort [Unknown]
  - Burning sensation [Recovered/Resolved]
  - Musculoskeletal discomfort [Unknown]
  - Peripheral swelling [Unknown]
  - Pain in extremity [Unknown]
  - Paraesthesia [Unknown]
  - Therapeutic product effect incomplete [Unknown]
  - Pain [Unknown]
  - Limb discomfort [Unknown]

NARRATIVE: CASE EVENT DATE: 20241226
